FAERS Safety Report 7818424-9 (Version None)
Quarter: 2011Q4

REPORT INFORMATION
  Report Type: 
  Country: None (occurrence: None)
  Receive Date: 20111017
  Receipt Date: 20111013
  Transmission Date: 20120403
  Serious: Yes (Other)
  Sender: FDA-Public Use
  Company Number: BR-PFIZER INC-2011245804

PATIENT
  Age: 52 Year
  Sex: Female
  Weight: 71 kg

DRUGS (3)
  1. VARENICLINE TARTRATE [Suspect]
     Indication: TOBACCO USER
     Dosage: UNK
     Route: 048
     Dates: start: 20110928
  2. VARENICLINE TARTRATE [Suspect]
     Dosage: 1 MG, EVERY 12 HOURS
     Route: 048
  3. ANGELIQ [Concomitant]
     Indication: MENOPAUSE
     Dosage: UNK, ONE TABLET BEFORE SLEEPING

REACTIONS (1)
  - MAJOR DEPRESSION [None]
